FAERS Safety Report 5708871-3 (Version None)
Quarter: 2008Q2

REPORT INFORMATION
  Report Type: 
  Country: None (occurrence: None)
  Receive Date: 20080416
  Receipt Date: 20080403
  Transmission Date: 20081010
  Serious: Yes (Hospitalization)
  Sender: FDA-Public Use
  Company Number: 2008US000863

PATIENT
  Age: 67 Year
  Sex: Female
  Weight: 109.8 kg

DRUGS (8)
  1. AMEVIVE [Suspect]
     Indication: PSORIASIS
     Dosage: 15 MG, WEEKLY, INTRAMUSCULAR
     Route: 030
     Dates: start: 20050901
  2. LASIX [Concomitant]
  3. DIOVAN [Concomitant]
  4. POTASSIUM CHLORIDE [Concomitant]
  5. PREDNISONE TAB [Concomitant]
  6. ALBUTEROL [Concomitant]
  7. HUMALOG [Concomitant]
  8. HUMULIN (INSULIN HUMAN INJECTION, ISOPHANE) [Concomitant]

REACTIONS (10)
  - BLOOD GLUCOSE INCREASED [None]
  - BLOOD PRESSURE SYSTOLIC INCREASED [None]
  - BRAIN NATRIURETIC PEPTIDE INCREASED [None]
  - CHRONIC OBSTRUCTIVE PULMONARY DISEASE [None]
  - CONDITION AGGRAVATED [None]
  - HAEMOGLOBIN DECREASED [None]
  - HYPERCAPNIA [None]
  - PLATELET COUNT DECREASED [None]
  - SOMNOLENCE [None]
  - WHITE BLOOD CELL COUNT INCREASED [None]
